FAERS Safety Report 4709075-3 (Version None)
Quarter: 2005Q3

REPORT INFORMATION
  Report Type: 
  Country: None (occurrence: None)
  Receive Date: 20050708
  Receipt Date: 20050617
  Transmission Date: 20060218
  Serious: Yes (Hospitalization, Other)
  Sender: FDA-Public Use
  Company Number: 200511802JP

PATIENT
  Age: 25 Year
  Sex: Male

DRUGS (1)
  1. KETEK [Suspect]
     Indication: TONSILLITIS
     Route: 048
     Dates: start: 20050106, end: 20050101

REACTIONS (2)
  - ERYTHEMA NODOSUM [None]
  - PYREXIA [None]
